FAERS Safety Report 7040020-4 (Version None)
Quarter: 2010Q4

REPORT INFORMATION
  Report Type: 
  Country: None (occurrence: None)
  Receive Date: 20101012
  Receipt Date: 20101004
  Transmission Date: 20110411
  Serious: Yes (Hospitalization, Other)
  Sender: FDA-Public Use
  Company Number: GB-TEVA-250808ISR

PATIENT
  Age: 71 Year
  Sex: Male
  Weight: 94 kg

DRUGS (1)
  1. METFORMIN [Suspect]
     Route: 048
     Dates: start: 20100601, end: 20100921

REACTIONS (3)
  - ABDOMINAL PAIN [None]
  - HEPATITIS ACUTE [None]
  - LIVER FUNCTION TEST ABNORMAL [None]
